FAERS Safety Report 26001858 (Version 1)
Quarter: 2025Q4

REPORT INFORMATION
  Report Type: Spontaneous
  Country: EU (occurrence: EU)
  Receive Date: 20251105
  Receipt Date: 20251105
  Transmission Date: 20260117
  Serious: Yes (Hospitalization, Other)
  Sender: PFIZER
  Company Number: EU-SUN PHARMACEUTICAL INDUSTRIES LTD-2025RR-533968

PATIENT
  Sex: Female

DRUGS (3)
  1. ARTHROTEC [Suspect]
     Active Substance: DICLOFENAC SODIUM\MISOPROSTOL
     Indication: Vaginal haemorrhage
     Dosage: 4 DF (4 VAGINAL LITTLE PILLS)
     Route: 060
  2. MIFEPRISTONE\MISOPROSTOL [Suspect]
     Active Substance: MIFEPRISTONE\MISOPROSTOL
     Dosage: UNK
     Dates: start: 20251010
  3. MIFEPRISTONE\MISOPROSTOL [Suspect]
     Active Substance: MIFEPRISTONE\MISOPROSTOL
     Dosage: 4 DF (4 VAGINAL LITTLE PILLS)
     Route: 067
     Dates: start: 20251011

REACTIONS (6)
  - Asthenia [Unknown]
  - Delirium [Unknown]
  - Vaginal haemorrhage [Unknown]
  - Hyperhidrosis [Unknown]
  - Off label use [Unknown]
  - Off label use [Unknown]
